FAERS Safety Report 9656280 (Version 2)
Quarter: 2013Q4

REPORT INFORMATION
  Report Type: Spontaneous
  Country: US (occurrence: US)
  Receive Date: 20131030
  Receipt Date: 20131226
  Transmission Date: 20140711
  Serious: Yes (Other)
  Sender: FDA-Public Use
  Company Number: US-BAYER-2013-131774

PATIENT
  Sex: Female

DRUGS (1)
  1. MIRENA [Suspect]
     Dosage: 20 MCG/24HR, CONT
     Route: 015
     Dates: start: 201102, end: 20111031

REACTIONS (6)
  - Uterine perforation [None]
  - Injury [None]
  - Medical device complication [None]
  - Device difficult to use [None]
  - Emotional distress [None]
  - Pain [None]
